FAERS Safety Report 10935081 (Version 1)
Quarter: 2015Q1

REPORT INFORMATION
  Report Type: Report from Study
  Country: PL (occurrence: PL)
  Receive Date: 20150320
  Receipt Date: 20150320
  Transmission Date: 20150721
  Serious: Yes (Hospitalization, Other)
  Sender: FDA-Public Use
  Company Number: PL-BAYER-2015-038704

PATIENT
  Sex: Female

DRUGS (1)
  1. SKYLA [Suspect]
     Active Substance: LEVONORGESTREL
     Indication: CONTRACEPTION
     Dosage: 14 MCG/24HR, CONT
     Route: 015
     Dates: start: 20141107, end: 20150310

REACTIONS (4)
  - Drug ineffective [None]
  - Haemoglobin decreased [None]
  - Ectopic pregnancy [None]
  - Procedural haemorrhage [Not Recovered/Not Resolved]
